FAERS Safety Report 4588623-0 (Version None)
Quarter: 2005Q1

REPORT INFORMATION
  Report Type: 
  Country: None (occurrence: None)
  Receive Date: 20050222
  Receipt Date: 20050216
  Transmission Date: 20050727
  Serious: Yes (Hospitalization, Other)
  Sender: FDA-Public Use
  Company Number: PHEH2005US02144

PATIENT
  Age: 58 Year
  Sex: Male

DRUGS (5)
  1. CLOZARIL [Suspect]
     Indication: SCHIZOPHRENIA
     Dosage: UNK, UNK
     Route: 048
     Dates: end: 20050209
  2. CLOZARIL [Suspect]
     Dosage: 12.5 MG, QD
     Route: 048
     Dates: start: 20050201
  3. LITHOBID [Concomitant]
  4. ZOLOFT [Concomitant]
  5. ANTIHYPERTENSIVE DRUGS [Concomitant]

REACTIONS (6)
  - ANAEMIA [None]
  - CARDIAC FAILURE CONGESTIVE [None]
  - CARDIAC MYXOMA [None]
  - DEHYDRATION [None]
  - NAUSEA [None]
  - VOMITING [None]
